FAERS Safety Report 5099269-2 (Version None)
Quarter: 2006Q3

REPORT INFORMATION
  Report Type: 
  Country: None (occurrence: None)
  Receive Date: 20060731
  Receipt Date: 20060406
  Transmission Date: 20061208
  Serious: Yes (Other)
  Sender: FDA-Public Use
  Company Number: US-2006-008118

PATIENT
  Age: 47 Year
  Sex: Male

DRUGS (3)
  1. MAGNEVIST [Suspect]
     Indication: NUCLEAR MAGNETIC RESONANCE IMAGING THORACIC
     Dosage: 40 ML, 1 DOSE, INTRAVENOUS
     Route: 042
     Dates: start: 20060404, end: 20060404
  2. ADDERALL 10 [Concomitant]
  3. ELAVIL [Concomitant]

REACTIONS (3)
  - CHEST DISCOMFORT [None]
  - NASAL CONGESTION [None]
  - NAUSEA [None]
